FAERS Safety Report 4431545-6 (Version None)
Quarter: 2004Q3

REPORT INFORMATION
  Report Type: 
  Country: None (occurrence: None)
  Receive Date: 20040726
  Receipt Date: 20040405
  Transmission Date: 20050211
  Serious: No
  Sender: FDA-Public Use
  Company Number: USA040464102

PATIENT
  Age: 72 Year
  Sex: Female

DRUGS (18)
  1. FORTEO [Suspect]
     Indication: OSTEOPOROSIS
     Dates: start: 20040316
  2. PREVACID [Concomitant]
  3. ADALAT [Concomitant]
  4. VASOTEC [Concomitant]
  5. PENTA-TRIAMTERENE HCTZ [Concomitant]
  6. ATENOLOL [Concomitant]
  7. MEVACOR [Concomitant]
  8. PAXIL [Concomitant]
  9. LEVOXYL [Concomitant]
  10. DETROL LA (TOLTERODINE L-TARTRATE) [Concomitant]
  11. CALCIUM [Concomitant]
  12. MULTI-VITAMIN [Concomitant]
  13. VITAMIN E [Concomitant]
  14. VITAMIN C [Concomitant]
  15. GARLIC [Concomitant]
  16. FLAX SEED OIL [Concomitant]
  17. PREMARIN [Concomitant]
  18. PREMARIN H-C VAGINAL CREAM [Concomitant]

REACTIONS (5)
  - ASTHENIA [None]
  - BARRETT'S OESOPHAGUS [None]
  - HEADACHE [None]
  - NAUSEA [None]
  - STRESS SYMPTOMS [None]
